FAERS Safety Report 14267004 (Version 1)
Quarter: 2017Q4

REPORT INFORMATION
  Report Type: Spontaneous
  Country: RO (occurrence: RO)
  Receive Date: 20171211
  Receipt Date: 20171211
  Transmission Date: 20180321
  Serious: Yes (Other)
  Sender: FDA-Public Use
  Company Number: RO-ACCORD-061744

PATIENT
  Age: 4 Month
  Sex: Male

DRUGS (1)
  1. HYDROCHLOROTHIAZIDE. [Suspect]
     Active Substance: HYDROCHLOROTHIAZIDE
     Indication: NEPHROGENIC DIABETES INSIPIDUS
     Dosage: 2 MG/KG/BODY

REACTIONS (2)
  - Alkalosis [Unknown]
  - Hypokalaemia [Unknown]
